FAERS Safety Report 4745348-6 (Version None)
Quarter: 2005Q3

REPORT INFORMATION
  Report Type: 
  Country: None (occurrence: None)
  Receive Date: 20050815
  Receipt Date: 20050811
  Transmission Date: 20060218
  Serious: Yes (Death)
  Sender: FDA-Public Use
  Company Number: PHBS2005JP11717

PATIENT

DRUGS (1)
  1. NEORAL [Suspect]
     Dosage: 400 MG/D
     Route: 048

REACTIONS (1)
  - DEATH [None]
